FAERS Safety Report 23653413 (Version 1)
Quarter: 2024Q1

REPORT INFORMATION
  Report Type: Spontaneous
  Country: FR (occurrence: FR)
  Receive Date: 20240320
  Receipt Date: 20240320
  Transmission Date: 20240409
  Serious: Yes (Hospitalization, Other)
  Sender: FDA-Public Use
  Company Number: FR-OTSUKA-2024_006962

PATIENT
  Age: 32 Year
  Sex: Female

DRUGS (1)
  1. ABILIFY [Suspect]
     Active Substance: ARIPIPRAZOLE
     Indication: Bipolar disorder
     Dosage: UNK
     Route: 065

REACTIONS (5)
  - Hypoaesthesia [Unknown]
  - Myalgia [Unknown]
  - Blood creatine phosphokinase increased [Recovering/Resolving]
  - Transaminases increased [Unknown]
  - Tachycardia [Unknown]
